FAERS Safety Report 9096019 (Version 3)
Quarter: 2013Q2

REPORT INFORMATION
  Report Type: Report from Study
  Country: CA (occurrence: CA)
  Receive Date: 20130207
  Receipt Date: 20130529
  Transmission Date: 20140414
  Serious: Yes (Other)
  Sender: FDA-Public Use
  Company Number: CA-JNJFOC-20130116637

PATIENT
  Age: 50 Year
  Sex: Male
  Weight: 72 kg

DRUGS (4)
  1. REMICADE [Suspect]
     Indication: CROHN^S DISEASE
     Route: 042
  2. SULFASALAZINE [Concomitant]
     Route: 065
  3. DICITAL [Concomitant]
     Route: 065
  4. ASA [Concomitant]
     Route: 065

REACTIONS (3)
  - Chest pain [Not Recovered/Not Resolved]
  - Dyspnoea exertional [Not Recovered/Not Resolved]
  - Hypoaesthesia [Not Recovered/Not Resolved]
